FAERS Safety Report 10655213 (Version 1)
Quarter: 2014Q4

REPORT INFORMATION
  Report Type: Spontaneous
  Country: CN (occurrence: CN)
  Receive Date: 20141216
  Receipt Date: 20141216
  Transmission Date: 20150529
  Serious: Yes (Other)
  Sender: FDA-Public Use
  Company Number: CN-PERRIGO-14CN011980

PATIENT
  Sex: Male

DRUGS (1)
  1. MIDAZOLAM HCL [Suspect]
     Active Substance: MIDAZOLAM HYDROCHLORIDE
     Indication: PRODUCT USED FOR UNKNOWN INDICATION
     Dosage: UNK, UNK
     Route: 048

REACTIONS (3)
  - Hypotension [Recovered/Resolved]
  - Bronchospasm [Recovered/Resolved]
  - Anaphylactic reaction [Recovered/Resolved]
